FAERS Safety Report 20840642 (Version 7)
Quarter: 2023Q4

REPORT INFORMATION
  Report Type: Spontaneous
  Country: US (occurrence: US)
  Receive Date: 20220517
  Receipt Date: 20231005
  Transmission Date: 20240109
  Serious: Yes (Death)
  Sender: FDA-Public Use
  Company Number: US-PFIZER INC-202200354729

PATIENT
  Age: 79 Year
  Sex: Female

DRUGS (2)
  1. IBRANCE [Suspect]
     Active Substance: PALBOCICLIB
     Indication: Breast cancer female
     Dosage: 3X7 UD TAB 21
  2. IBRANCE [Suspect]
     Active Substance: PALBOCICLIB
     Dosage: 1 P.O Q. DAY FOR 21 D EVERY 28 D
     Route: 048

REACTIONS (3)
  - Death [Fatal]
  - Decreased appetite [Unknown]
  - Tumour marker increased [Unknown]
